FAERS Safety Report 8072112-5 (Version None)
Quarter: 2012Q1

REPORT INFORMATION
  Report Type: 
  Country: None (occurrence: None)
  Receive Date: 20120124
  Receipt Date: 20120124
  Transmission Date: 20120608
  Serious: Yes (Hospitalization)
  Sender: FDA-Public Use
  Company Number: None

PATIENT
  Age: 53 Year
  Sex: Male
  Weight: 99.5 kg

DRUGS (2)
  1. IBUPROFEN [Suspect]
     Indication: PAIN
     Dosage: 800 MG BID PO
     Route: 048
     Dates: start: 20100819, end: 20111223
  2. ASPIRIN [Suspect]
     Indication: PAIN
     Dosage: 1000 MG EVERY DAY PO
     Route: 048
     Dates: start: 20100717, end: 20111223

REACTIONS (5)
  - SMALL INTESTINAL HAEMORRHAGE [None]
  - SYNCOPE [None]
  - DIZZINESS POSTURAL [None]
  - GASTRIC HAEMORRHAGE [None]
  - HAEMOGLOBIN DECREASED [None]
